FAERS Safety Report 5323332-1 (Version None)
Quarter: 2007Q2

REPORT INFORMATION
  Report Type: 
  Country: None (occurrence: None)
  Receive Date: 20070220
  Receipt Date: 20070116
  Transmission Date: 20071010
  Serious: No
  Sender: FDA-Public Use
  Company Number: WAES 0701USA02088

PATIENT
  Age: 46 Year
  Sex: Female

DRUGS (6)
  1. JANUVIA [Suspect]
     Indication: GLUCOSE TOLERANCE IMPAIRED
     Dosage: 100 MG/DAILY/PO
     Route: 048
     Dates: start: 20061222, end: 20070113
  2. GLUCOSAMINE [Concomitant]
  3. METFORMIN HCL [Concomitant]
  4. PIROXICAM [Concomitant]
  5. MULTI-VITAMINS [Concomitant]
  6. ZINC (UNSPECIFIED) [Concomitant]

REACTIONS (1)
  - VISION BLURRED [None]
